FAERS Safety Report 10742222 (Version 2)
Quarter: 2015Q1

REPORT INFORMATION
  Report Type: Spontaneous
  Country: US (occurrence: US)
  Receive Date: 20150127
  Receipt Date: 20150203
  Transmission Date: 20150721
  Serious: Yes (Other)
  Sender: FDA-Public Use
  Company Number: US-BAYER-2015-011497

PATIENT
  Age: 80 Year
  Sex: Male

DRUGS (2)
  1. STIVARGA [Suspect]
     Active Substance: REGORAFENIB
     Dosage: UNK
     Route: 048
     Dates: start: 20150122
  2. STIVARGA [Suspect]
     Active Substance: REGORAFENIB
     Dosage: 2 TABLETS DAILY, ONE IN MORNING AND ONE AT NIGHT
     Route: 048

REACTIONS (7)
  - Arthritis [Not Recovered/Not Resolved]
  - Feeling of body temperature change [None]
  - Night sweats [None]
  - Blood pressure systolic increased [Not Recovered/Not Resolved]
  - Discomfort [None]
  - Back pain [Not Recovered/Not Resolved]
  - Insomnia [None]

NARRATIVE: CASE EVENT DATE: 20150123
